FAERS Safety Report 18763265 (Version 1)
Quarter: 2021Q1

REPORT INFORMATION
  Report Type: Spontaneous
  Country: US (occurrence: US)
  Receive Date: 20210120
  Receipt Date: 20210120
  Transmission Date: 20210419
  Serious: No
  Sender: FDA-Public Use
  Company Number: None

PATIENT
  Age: 67 Year
  Sex: Female

DRUGS (1)
  1. HUMIRA [Suspect]
     Active Substance: ADALIMUMAB
     Indication: ANKYLOSING SPONDYLITIS
     Dosage: OTHER FREQUENCY:EVERY 2 WEEKS;?
     Dates: start: 20180723

REACTIONS (2)
  - Musculoskeletal discomfort [None]
  - Hip arthroplasty [None]

NARRATIVE: CASE EVENT DATE: 20210119
